FAERS Safety Report 4915244-X (Version None)
Quarter: 2006Q1

REPORT INFORMATION
  Report Type: 
  Country: None (occurrence: None)
  Receive Date: 20060216
  Receipt Date: 20060216
  Transmission Date: 20060701
  Serious: Yes (Hospitalization)
  Sender: FDA-Public Use
  Company Number: None

PATIENT
  Sex: Female
  Weight: 67.1324 kg

DRUGS (2)
  1. AMPICILLIN SODIUM [Suspect]
     Indication: SYSTEMIC ANTIBACTERIAL THERAPY
     Dosage: 500MG IV X 1 DOSE
     Route: 042
     Dates: start: 20050602
  2. NIASPAN [Concomitant]

REACTIONS (5)
  - FLUSHING [None]
  - HYPOTENSION [None]
  - NAUSEA [None]
  - RASH [None]
  - WHEEZING [None]
